FAERS Safety Report 4396447-2 (Version None)
Quarter: 2004Q3

REPORT INFORMATION
  Report Type: 
  Country: None (occurrence: None)
  Receive Date: 20040709
  Receipt Date: 20040628
  Transmission Date: 20050211
  Serious: Yes (Hospitalization)
  Sender: FDA-Public Use
  Company Number: 2004CG01246

PATIENT
  Age: 57 Year
  Sex: Female
  Weight: 65 kg

DRUGS (4)
  1. ZESTORETIC [Suspect]
     Indication: HYPERTENSION
     Dosage: 20 + 12.5 MG
  2. FUCIDINE CAP [Suspect]
     Indication: DERMATOSIS
     Dates: start: 20040315, end: 20040322
  3. KERLONE [Suspect]
     Indication: HYPERTENSION
  4. AMLOR [Suspect]
     Indication: HYPERTENSION

REACTIONS (9)
  - ANURIA [None]
  - BIOPSY SKIN ABNORMAL [None]
  - DERMATITIS BULLOUS [None]
  - GENERALISED ERYTHEMA [None]
  - HYPOALBUMINAEMIA [None]
  - PHAEOCHROMOCYTOMA [None]
  - PSORIASIS [None]
  - RENAL FAILURE ACUTE [None]
  - TOXIC EPIDERMAL NECROLYSIS [None]
